FAERS Safety Report 16581587 (Version 1)
Quarter: 2019Q3

REPORT INFORMATION
  Report Type: Spontaneous
  Country: GR (occurrence: GR)
  Receive Date: 20190716
  Receipt Date: 20190716
  Transmission Date: 20191004
  Serious: Yes (Life-Threatening)
  Sender: FDA-Public Use
  Company Number: GR-ALLERGAN-1928812US

PATIENT
  Sex: Female
  Weight: 62 kg

DRUGS (3)
  1. MESALAZINE UNK [Suspect]
     Active Substance: MESALAMINE
     Indication: COLITIS ULCERATIVE
     Dosage: 60 ML, UNK
     Route: 054
     Dates: start: 20190415, end: 20190521
  2. VITAMIN D [Concomitant]
     Active Substance: VITAMIN D NOS
     Dosage: 3 DF, Q WEEK
  3. SALOFALK [Concomitant]
     Dosage: 3 G

REACTIONS (4)
  - Pulmonary embolism [Recovering/Resolving]
  - Pulmonary fibrosis [Recovering/Resolving]
  - Coagulopathy [Recovering/Resolving]
  - Somnolence [Recovering/Resolving]

NARRATIVE: CASE EVENT DATE: 20190426
